FAERS Safety Report 6415225-3 (Version None)
Quarter: 2009Q4

REPORT INFORMATION
  Report Type: 
  Country: None (occurrence: None)
  Receive Date: 20091027
  Receipt Date: 20090926
  Transmission Date: 20100525
  Serious: No
  Sender: FDA-Public Use
  Company Number: US-BAYER-200924521NA

PATIENT
  Age: 37 Year
  Sex: Female

DRUGS (3)
  1. YAZ [Suspect]
     Indication: CONTRACEPTION
  2. VITAMINS [Concomitant]
  3. AMBIEN [Concomitant]

REACTIONS (2)
  - BLOOD POTASSIUM INCREASED [None]
  - HYPOAESTHESIA [None]
